FAERS Safety Report 7073151-3 (Version None)
Quarter: 2010Q4

REPORT INFORMATION
  Report Type: 
  Country: None (occurrence: None)
  Receive Date: 20101029
  Receipt Date: 20100503
  Transmission Date: 20110411
  Serious: No
  Sender: FDA-Public Use
  Company Number: A0857707A

PATIENT
  Sex: Female

DRUGS (5)
  1. ADVAIR DISKUS 100/50 [Suspect]
     Dosage: 2PUFF PER DAY
     Route: 055
     Dates: start: 20100426
  2. THYROID SUPPLEMENT [Concomitant]
  3. VITAMINS [Concomitant]
  4. LOVAZA [Concomitant]
  5. UNSPECIFIED [Concomitant]

REACTIONS (2)
  - ILL-DEFINED DISORDER [None]
  - VOMITING [None]
